FAERS Safety Report 6902191-7 (Version None)
Quarter: 2010Q3

REPORT INFORMATION
  Report Type: 
  Country: None (occurrence: None)
  Receive Date: 20100803
  Receipt Date: 20080428
  Transmission Date: 20110219
  Serious: No
  Sender: FDA-Public Use
  Company Number: US-PFIZER INC-2008034781

PATIENT
  Sex: Female
  Weight: 65.9 kg

DRUGS (9)
  1. LYRICA [Suspect]
     Indication: POST HERPETIC NEURALGIA
     Route: 048
     Dates: start: 20080301
  2. ACETYLSALICYLIC ACID SRT [Concomitant]
  3. SPIRONOLACTONE [Concomitant]
  4. METOPROLOL [Concomitant]
  5. LOVASTATIN [Concomitant]
  6. LISINOPRIL [Concomitant]
  7. WARFARIN SODIUM [Concomitant]
  8. LASIX [Concomitant]
  9. AMIODARONE HCL [Concomitant]

REACTIONS (3)
  - BLOOD CHOLESTEROL INCREASED [None]
  - DIZZINESS [None]
  - DRUG INEFFECTIVE [None]
